FAERS Safety Report 16813831 (Version 1)
Quarter: 2019Q3

REPORT INFORMATION
  Report Type: Spontaneous
  Country: US (occurrence: US)
  Receive Date: 20190917
  Receipt Date: 20190917
  Transmission Date: 20191005
  Serious: Yes (Hospitalization, Other)
  Sender: FDA-Public Use
  Company Number: US-AUROBINDO-AUR-APL-2019-058891

PATIENT
  Age: 54 Year
  Sex: Female

DRUGS (1)
  1. TRIMETHOPRIM+SULFAMETHOXAZOLE [Suspect]
     Active Substance: SULFAMETHOXAZOLE\TRIMETHOPRIM
     Indication: SINUSITIS
     Dosage: 160 MILLIGRAM, TWO TIMES A DAY
     Route: 065

REACTIONS (3)
  - Hyponatraemia [Recovering/Resolving]
  - Condition aggravated [Recovering/Resolving]
  - Primary adrenal insufficiency [Recovering/Resolving]
